FAERS Safety Report 5381696-7 (Version None)
Quarter: 2007Q2

REPORT INFORMATION
  Report Type: 
  Country: None (occurrence: None)
  Receive Date: 20070629
  Receipt Date: 20060908
  Transmission Date: 20071010
  Serious: Yes (Other)
  Sender: FDA-Public Use
  Company Number: 2006109420

PATIENT
  Age: 20 Year
  Sex: Male

DRUGS (3)
  1. ZOLOFT [Suspect]
     Indication: DEPRESSION
     Dosage: 150 MG (1 IN 1 D), ORAL
     Route: 048
  2. PROVIGIL [Suspect]
     Indication: NARCOLEPSY
     Dosage: 200 MG (1 IN 1 D), ORAL
     Route: 048
     Dates: start: 20050820
  3. ABILIFY [Suspect]
     Indication: DRUG USE FOR UNKNOWN INDICATION
     Dosage: 10 MG (1 IN 1 D), ORAL
     Route: 048

REACTIONS (8)
  - DEPRESSION [None]
  - DRUG INTERACTION [None]
  - FEAR [None]
  - FEELING ABNORMAL [None]
  - INSOMNIA [None]
  - NERVOUSNESS [None]
  - SUICIDAL IDEATION [None]
  - TIC [None]
